FAERS Safety Report 23498726 (Version 1)
Quarter: 2024Q1

REPORT INFORMATION
  Report Type: Other
  Country: CA (occurrence: CA)
  Receive Date: 20240207
  Receipt Date: 20240207
  Transmission Date: 20240410
  Serious: Yes (Life-Threatening, Other)
  Sender: FDA-Public Use
  Company Number: CA-SSPHARMA-2024CASSP00005

PATIENT
  Age: 65 Year
  Sex: Male

DRUGS (99)
  1. ERGOCALCIFEROL [Suspect]
     Active Substance: ERGOCALCIFEROL
     Indication: Product used for unknown indication
     Dosage: UNKNOWN
     Route: 065
  2. METFORMIN HYDROCHLORIDE [Concomitant]
     Active Substance: METFORMIN HYDROCHLORIDE
     Indication: Product used for unknown indication
     Dosage: 4 DF
     Route: 065
  3. METFORMIN HYDROCHLORIDE [Concomitant]
     Active Substance: METFORMIN HYDROCHLORIDE
     Dosage: 2 DF
     Route: 065
  4. METFORMIN HYDROCHLORIDE [Concomitant]
     Active Substance: METFORMIN HYDROCHLORIDE
     Route: 065
  5. METFORMIN HYDROCHLORIDE [Concomitant]
     Active Substance: METFORMIN HYDROCHLORIDE
     Dosage: UNKNOWN
     Route: 065
  6. ALENDRONATE SODIUM [Concomitant]
     Active Substance: ALENDRONATE SODIUM
     Indication: Product used for unknown indication
     Dosage: 1 DF QD
     Route: 065
  7. ALENDRONATE SODIUM [Concomitant]
     Active Substance: ALENDRONATE SODIUM
     Route: 065
  8. ALENDRONATE SODIUM [Concomitant]
     Active Substance: ALENDRONATE SODIUM
     Dosage: 1 DF
     Route: 065
  9. ALENDRONATE SODIUM [Concomitant]
     Active Substance: ALENDRONATE SODIUM
     Dosage: 1 DF
     Route: 065
  10. PANTOPRAZOLE SODIUM [Concomitant]
     Active Substance: PANTOPRAZOLE SODIUM
     Indication: Product used for unknown indication
     Dosage: 1 DF
     Route: 065
  11. PANTOPRAZOLE SODIUM [Concomitant]
     Active Substance: PANTOPRAZOLE SODIUM
     Dosage: 2 DF
     Route: 065
  12. AZATHIOPRINE [Concomitant]
     Active Substance: AZATHIOPRINE
     Indication: Product used for unknown indication
     Route: 065
  13. AZATHIOPRINE [Concomitant]
     Active Substance: AZATHIOPRINE
     Route: 065
  14. AZATHIOPRINE [Concomitant]
     Active Substance: AZATHIOPRINE
     Route: 065
  15. AZATHIOPRINE [Concomitant]
     Active Substance: AZATHIOPRINE
     Dosage: UNKNOWN
     Route: 065
  16. AZATHIOPRINE [Concomitant]
     Active Substance: AZATHIOPRINE
     Route: 065
  17. AZATHIOPRINE [Concomitant]
     Active Substance: AZATHIOPRINE
     Dosage: UNKNOWN
     Route: 065
  18. AZATHIOPRINE [Concomitant]
     Active Substance: AZATHIOPRINE
     Route: 065
  19. AZITHROMYCIN [Concomitant]
     Active Substance: AZITHROMYCIN
     Indication: Product used for unknown indication
     Dosage: UNKNOWN
     Route: 065
  20. AZITHROMYCIN [Concomitant]
     Active Substance: AZITHROMYCIN
     Route: 065
  21. AZITHROMYCIN [Concomitant]
     Active Substance: AZITHROMYCIN
     Route: 065
  22. AZITHROMYCIN DIHYDRATE [Concomitant]
     Active Substance: AZITHROMYCIN DIHYDRATE
     Indication: Product used for unknown indication
     Dosage: 1 DF
     Route: 065
  23. AZITHROMYCIN DIHYDRATE [Concomitant]
     Active Substance: AZITHROMYCIN DIHYDRATE
     Dosage: 1 DF
     Route: 065
  24. AZITHROMYCIN DIHYDRATE [Concomitant]
     Active Substance: AZITHROMYCIN DIHYDRATE
     Dosage: 2 DF
     Route: 065
  25. BETA GLUCAN [Concomitant]
     Active Substance: BETA GLUCAN
     Indication: Product used for unknown indication
     Dosage: UNKNOWN
     Route: 065
  26. BETAMETHASONE [Concomitant]
     Active Substance: BETAMETHASONE\BETAMETHASONE DIPROPIONATE
     Indication: Product used for unknown indication
     Dosage: UNKNOWN
     Route: 065
  27. BETAMETHASONE DIPROPIONATE [Concomitant]
     Active Substance: BETAMETHASONE DIPROPIONATE
     Indication: Product used for unknown indication
     Dosage: UNKNOWN
     Route: 065
  28. BETAMETHASONE DIPROPIONATE [Concomitant]
     Active Substance: BETAMETHASONE DIPROPIONATE
     Dosage: UNKNOWN
     Route: 065
  29. BUDESONIDE [Concomitant]
     Active Substance: BUDESONIDE
     Indication: Product used for unknown indication
     Dosage: UNKNOWN
     Route: 065
  30. CALCIUM CARBONATE [Concomitant]
     Active Substance: CALCIUM CARBONATE
     Indication: Product used for unknown indication
     Route: 065
  31. CALCIUM CARBONATE [Concomitant]
     Active Substance: CALCIUM CARBONATE
     Dosage: UNKNOWN
     Route: 065
  32. CANDESARTAN [Concomitant]
     Active Substance: CANDESARTAN
     Indication: Product used for unknown indication
     Dosage: 1 DF
     Route: 065
  33. CANDESARTAN [Concomitant]
     Active Substance: CANDESARTAN
     Dosage: UNKNOWN
     Route: 065
  34. CANDESARTAN CILEXETIL [Concomitant]
     Active Substance: CANDESARTAN CILEXETIL
     Indication: Product used for unknown indication
     Route: 048
  35. CANDESARTAN CILEXETIL [Concomitant]
     Active Substance: CANDESARTAN CILEXETIL
     Dosage: UNKNOWN
  36. CANDESARTAN CILEXETIL [Concomitant]
     Active Substance: CANDESARTAN CILEXETIL
  37. CANDESARTAN CILEXETIL [Concomitant]
     Active Substance: CANDESARTAN CILEXETIL
     Dosage: 1 DF
  38. CANDESARTAN CILEXETIL\HYDROCHLOROTHIAZIDE [Concomitant]
     Active Substance: CANDESARTAN CILEXETIL\HYDROCHLOROTHIAZIDE
     Indication: Product used for unknown indication
     Dosage: 1 DF
     Route: 048
  39. CANDESARTAN CILEXETIL\HYDROCHLOROTHIAZIDE [Concomitant]
     Active Substance: CANDESARTAN CILEXETIL\HYDROCHLOROTHIAZIDE
     Dosage: 1 DF
  40. CEFUROXIME [Concomitant]
     Active Substance: CEFUROXIME
     Indication: Product used for unknown indication
     Dosage: 2 DF
  41. CEFUROXIME [Concomitant]
     Active Substance: CEFUROXIME
     Dosage: 1 DF
  42. CEFUROXIME [Concomitant]
     Active Substance: CEFUROXIME
  43. CEFUROXIME [Concomitant]
     Active Substance: CEFUROXIME
     Dosage: 1 DF
  44. CEFUROXIME AXETIL [Concomitant]
     Active Substance: CEFUROXIME AXETIL
     Indication: Product used for unknown indication
     Route: 065
  45. CEFUROXIME AXETIL [Concomitant]
     Active Substance: CEFUROXIME AXETIL
     Route: 065
  46. CEFUROXIME AXETIL [Concomitant]
     Active Substance: CEFUROXIME AXETIL
     Dosage: UNKNOWN
     Route: 065
  47. CEFUROXIME SODIUM [Concomitant]
     Active Substance: CEFUROXIME SODIUM
     Indication: Product used for unknown indication
     Dosage: 4 DF
     Route: 065
  48. CEPHALEXIN [Concomitant]
     Active Substance: CEPHALEXIN
     Indication: Product used for unknown indication
     Dosage: UNKNOWN
     Route: 065
  49. DOMPERIDONE MALEATE [Concomitant]
     Active Substance: DOMPERIDONE MALEATE
     Indication: Product used for unknown indication
     Route: 065
  50. DOMPERIDONE MALEATE [Concomitant]
     Active Substance: DOMPERIDONE MALEATE
     Route: 065
  51. DOMPERIDONE MALEATE [Concomitant]
     Active Substance: DOMPERIDONE MALEATE
     Dosage: 1 DF
     Route: 065
  52. DOMPERIDONE MALEATE [Concomitant]
     Active Substance: DOMPERIDONE MALEATE
     Route: 065
  53. DOMPERIDONE MALEATE [Concomitant]
     Active Substance: DOMPERIDONE MALEATE
     Dosage: 2 DF
     Route: 065
  54. DOMPERIDONE MALEATE [Concomitant]
     Active Substance: DOMPERIDONE MALEATE
     Dosage: UNKNOWN
     Route: 065
  55. FUROSEMIDE [Concomitant]
     Active Substance: FUROSEMIDE
     Indication: Product used for unknown indication
  56. INSULIN ASPART [Concomitant]
     Active Substance: INSULIN ASPART
     Indication: Product used for unknown indication
     Dosage: 1 DF
     Route: 058
  57. INSULIN GLARGINE [Concomitant]
     Active Substance: INSULIN GLARGINE
     Indication: Product used for unknown indication
     Dosage: UNKNOWN
     Route: 065
  58. LEVOFLOXACIN [Concomitant]
     Active Substance: LEVOFLOXACIN
     Indication: Product used for unknown indication
     Route: 065
  59. LEVOFLOXACIN [Concomitant]
     Active Substance: LEVOFLOXACIN
     Route: 065
  60. LEVOFLOXACIN [Concomitant]
     Active Substance: LEVOFLOXACIN
     Dosage: 1 DF
     Route: 065
  61. LEVOFLOXACIN [Concomitant]
     Active Substance: LEVOFLOXACIN
     Route: 065
  62. LEVOFLOXACIN [Concomitant]
     Active Substance: LEVOFLOXACIN
     Dosage: 3 DF
     Route: 065
  63. LEVOTHYROXINE SODIUM [Concomitant]
     Active Substance: LEVOTHYROXINE SODIUM
     Indication: Product used for unknown indication
     Dosage: UNKNOWN
     Route: 065
  64. LIRAGLUTIDE [Concomitant]
     Active Substance: LIRAGLUTIDE
     Indication: Product used for unknown indication
     Dosage: UNKNOWN
     Route: 065
  65. MAGNESIUM OXIDE [Concomitant]
     Active Substance: MAGNESIUM OXIDE
     Indication: Product used for unknown indication
     Dosage: 1 DF
     Route: 065
  66. MAGNESIUM OXIDE [Concomitant]
     Active Substance: MAGNESIUM OXIDE
     Route: 065
  67. MAGNESIUM OXIDE [Concomitant]
     Active Substance: MAGNESIUM OXIDE
     Dosage: UNKNOWN
     Route: 065
  68. MAGNESIUM OXIDE [Concomitant]
     Active Substance: MAGNESIUM OXIDE
     Route: 065
  69. METFORMIN [Concomitant]
     Active Substance: METFORMIN HYDROCHLORIDE
     Indication: Product used for unknown indication
     Dosage: UNKNOWN
     Route: 065
  70. MONTELUKAST SODIUM [Concomitant]
     Active Substance: MONTELUKAST SODIUM
     Indication: Product used for unknown indication
     Route: 065
  71. MORNIFLUMATE [Suspect]
     Active Substance: MORNIFLUMATE
     Indication: Product used for unknown indication
     Dosage: 1 DF
     Route: 065
  72. MORNIFLUMATE [Suspect]
     Active Substance: MORNIFLUMATE
     Dosage: UNKNOWN
     Route: 065
  73. MORNIFLUMATE [Suspect]
     Active Substance: MORNIFLUMATE
     Route: 065
  74. MORNIFLUMATE [Suspect]
     Active Substance: MORNIFLUMATE
     Dosage: 1 DF
     Route: 065
  75. PANTOPRAZOLE [Concomitant]
     Active Substance: PANTOPRAZOLE
     Indication: Product used for unknown indication
     Dosage: 2 DF
     Route: 065
  76. PANTOPRAZOLE [Concomitant]
     Active Substance: PANTOPRAZOLE
     Dosage: UNKNOWN
     Route: 065
  77. PANTOPRAZOLE [Concomitant]
     Active Substance: PANTOPRAZOLE
     Dosage: UNKNOWN
     Route: 065
  78. PANTOPRAZOLE [Concomitant]
     Active Substance: PANTOPRAZOLE
     Dosage: 1 DF
     Route: 065
  79. PREDNISONE [Concomitant]
     Active Substance: PREDNISONE
     Indication: Product used for unknown indication
     Route: 065
  80. PREDNISONE [Concomitant]
     Active Substance: PREDNISONE
     Route: 065
  81. PREDNISONE [Concomitant]
     Active Substance: PREDNISONE
     Route: 065
  82. PREDNISONE [Concomitant]
     Active Substance: PREDNISONE
     Route: 065
  83. PREDNISONE [Concomitant]
     Active Substance: PREDNISONE
     Route: 065
  84. PREDNISONE [Concomitant]
     Active Substance: PREDNISONE
     Route: 065
  85. SULFADIAZINE [Concomitant]
     Active Substance: SULFADIAZINE
     Indication: Product used for unknown indication
     Dosage: UNKNOWN
     Route: 065
  86. TAMSULOSIN HYDROCHLORIDE [Concomitant]
     Active Substance: TAMSULOSIN HYDROCHLORIDE
     Indication: Product used for unknown indication
     Dosage: UNKNOWN
     Route: 065
  87. CLOTRIMAZOLE [Concomitant]
     Active Substance: CLOTRIMAZOLE
     Indication: Product used for unknown indication
     Dosage: UNKNOWN
     Route: 065
  88. ALBUTEROL [Concomitant]
     Active Substance: ALBUTEROL
     Indication: Eosinophilic granulomatosis with polyangiitis
     Dosage: UNKNOWN
     Route: 065
  89. SULFAMETHOXAZOLE\TRIMETHOPRIM [Concomitant]
     Active Substance: SULFAMETHOXAZOLE\TRIMETHOPRIM
     Indication: Product used for unknown indication
     Dosage: UNKNOWN
     Route: 065
  90. SULFAMETHOXAZOLE\TRIMETHOPRIM [Concomitant]
     Active Substance: SULFAMETHOXAZOLE\TRIMETHOPRIM
     Dosage: 3 DF
     Route: 065
  91. TRELEGY ELLIPTA [Concomitant]
     Active Substance: FLUTICASONE FUROATE\UMECLIDINIUM BROMIDE\VILANTEROL TRIFENATATE
     Indication: Product used for unknown indication
     Dosage: UNKNOWN
     Route: 065
  92. UMECLIDINIUM BROMIDE [Concomitant]
     Active Substance: UMECLIDINIUM BROMIDE
     Indication: Product used for unknown indication
     Dosage: UNKNOWN
     Route: 065
  93. UMECLIDINIUM BROMIDE\VILANTEROL TRIFENATATE [Concomitant]
     Active Substance: UMECLIDINIUM BROMIDE\VILANTEROL TRIFENATATE
     Indication: Product used for unknown indication
     Dosage: 1 DF
     Route: 065
  94. UMECLIDINIUM BROMIDE\VILANTEROL TRIFENATATE [Concomitant]
     Active Substance: UMECLIDINIUM BROMIDE\VILANTEROL TRIFENATATE
     Dosage: UNKNOWN
     Route: 065
  95. VITAMIN D3 [Concomitant]
     Active Substance: CHOLECALCIFEROL
     Indication: Product used for unknown indication
     Dosage: UNKNOWN
     Route: 065
  96. GLUCAGON [Concomitant]
     Active Substance: GLUCAGON\GLUCAGON HYDROCHLORIDE\WATER
     Indication: Product used for unknown indication
  97. GLUCAGON [Concomitant]
     Active Substance: GLUCAGON\GLUCAGON HYDROCHLORIDE\WATER
  98. PENICILLIN V POTASSIUM [Concomitant]
     Active Substance: PENICILLIN V POTASSIUM
     Indication: Product used for unknown indication
     Dosage: UNKNOWN
     Route: 065
  99. SULFADIAZINE\TRIMETHOPRIM [Concomitant]
     Active Substance: SULFADIAZINE\TRIMETHOPRIM
     Indication: Product used for unknown indication
     Dosage: UNKNOWN
     Route: 065

REACTIONS (22)
  - Anxiety [Unknown]
  - Condition aggravated [Unknown]
  - Dyspnoea [Unknown]
  - Eosinophilic granulomatosis with polyangiitis [Unknown]
  - Full blood count abnormal [Unknown]
  - Haemoptysis [Unknown]
  - Hypothyroidism [Unknown]
  - Loss of personal independence in daily activities [Unknown]
  - Lung disorder [Unknown]
  - Neuritis [Unknown]
  - Neurological symptom [Unknown]
  - Obstructive airways disorder [Unknown]
  - Pain in extremity [Unknown]
  - Pulmonary alveolar haemorrhage [Unknown]
  - Pulmonary fibrosis [Unknown]
  - Pulmonary vasculitis [Unknown]
  - Respiratory symptom [Unknown]
  - Sleep disorder due to a general medical condition [Unknown]
  - Vasculitis [Unknown]
  - Wheezing [Unknown]
  - Asthma [Unknown]
  - Therapeutic product effect incomplete [Unknown]
